FAERS Safety Report 18177463 (Version 2)
Quarter: 2020Q4

REPORT INFORMATION
  Report Type: Spontaneous
  Country: JP (occurrence: JP)
  Receive Date: 20200821
  Receipt Date: 20201130
  Transmission Date: 20210113
  Serious: Yes (Hospitalization, Other)
  Sender: FDA-Public Use
  Company Number: JP-009507513-2008JPN001270J

PATIENT
  Age: 47 Year
  Sex: Female
  Weight: 43 kg

DRUGS (9)
  1. INLYTA [Suspect]
     Active Substance: AXITINIB
     Indication: RENAL CELL CARCINOMA STAGE IV
     Dosage: 5 MILLIGRAM, BID
     Route: 048
     Dates: start: 20200423, end: 20200426
  2. INLYTA [Suspect]
     Active Substance: AXITINIB
     Dosage: 6 MILLIGRAM, BID
     Route: 048
     Dates: start: 20200506, end: 20200604
  3. INLYTA [Suspect]
     Active Substance: AXITINIB
     Dosage: 8 MILLIGRAM, BID
     Route: 048
     Dates: start: 20200626, end: 20200807
  4. INLYTA [Suspect]
     Active Substance: AXITINIB
     Dosage: 7 MILLIGRAM, BID
     Route: 048
     Dates: start: 20200605, end: 20200625
  5. INLYTA [Suspect]
     Active Substance: AXITINIB
     Dosage: 6 MILLIGRAM, BID
     Route: 048
     Dates: start: 20200427, end: 20200428
  6. KEYTRUDA [Suspect]
     Active Substance: PEMBROLIZUMAB
     Indication: RENAL CELL CARCINOMA STAGE IV
     Dosage: 200 MILLIGRAM, Q3W
     Route: 041
     Dates: start: 20200423, end: 2020
  7. KEYTRUDA [Suspect]
     Active Substance: PEMBROLIZUMAB
     Dosage: 200 MILLIGRAM, Q3W
     Route: 041
     Dates: start: 2020
  8. INLYTA [Suspect]
     Active Substance: AXITINIB
     Dosage: 8 MILLIGRAM, BID
     Route: 048
     Dates: start: 20200817
  9. INLYTA [Suspect]
     Active Substance: AXITINIB
     Dosage: 7 MILLIGRAM, BID
     Route: 048
     Dates: start: 20200429, end: 20200505

REACTIONS (3)
  - Adrenal insufficiency [Recovering/Resolving]
  - Hyponatraemia [Recovered/Resolved]
  - Drug eruption [Recovered/Resolved]

NARRATIVE: CASE EVENT DATE: 20200805
